FAERS Safety Report 10192445 (Version 1)
Quarter: 2014Q2

REPORT INFORMATION
  Report Type: Report from Study
  Country: US (occurrence: US)
  Receive Date: 20140523
  Receipt Date: 20140523
  Transmission Date: 20141212
  Serious: Yes (Other)
  Sender: FDA-Public Use
  Company Number: US-ABBVIE-14P-163-1238268-00

PATIENT
  Sex: Female
  Weight: 70.82 kg

DRUGS (5)
  1. CREON [Suspect]
     Indication: PANCREATITIS CHRONIC
     Dosage: 4 CAPSULES WITH MEALS AND 2 CAPSULES WITH SNACKS
     Route: 048
     Dates: start: 2009
  2. KLONOPIN [Concomitant]
     Indication: PRODUCT USED FOR UNKNOWN INDICATION
  3. OXYCODONE [Concomitant]
     Indication: PRODUCT USED FOR UNKNOWN INDICATION
  4. LANTUS [Concomitant]
     Indication: PRODUCT USED FOR UNKNOWN INDICATION
  5. NOVOLOG [Concomitant]
     Indication: PRODUCT USED FOR UNKNOWN INDICATION

REACTIONS (3)
  - Pancreatolithiasis [Recovered/Resolved]
  - Gallbladder disorder [Unknown]
  - Abdominal pain [Recovering/Resolving]
